FAERS Safety Report 9755965 (Version 1)
Quarter: 2013Q4

REPORT INFORMATION
  Report Type: Spontaneous
  Country: CA (occurrence: CA)
  Receive Date: 20131213
  Receipt Date: 20131213
  Transmission Date: 20140711
  Serious: Yes (Other)
  Sender: FDA-Public Use
  Company Number: CA-GLAXOSMITHKLINE-A1050863A

PATIENT
  Age: 45 Year
  Sex: Male

DRUGS (1)
  1. TAFINLAR [Suspect]
     Indication: METASTATIC MALIGNANT MELANOMA
     Dosage: 150MG PER DAY
     Route: 065

REACTIONS (3)
  - Arthritis [Recovered/Resolved]
  - Joint stiffness [Unknown]
  - Vasculitis [Unknown]
